FAERS Safety Report 4402836-X (Version None)
Quarter: 2004Q3

REPORT INFORMATION
  Report Type: 
  Country: None (occurrence: None)
  Receive Date: 20040721
  Receipt Date: 20040706
  Transmission Date: 20050211
  Serious: Yes (Death, Hospitalization, Other)
  Sender: FDA-Public Use
  Company Number: 200417053GDDC

PATIENT
  Age: 67 Year
  Sex: Female

DRUGS (11)
  1. LEFLUNOMIDE [Suspect]
     Indication: RHEUMATOID ARTHRITIS
     Route: 048
  2. METHOTREXATE [Suspect]
     Indication: RHEUMATOID ARTHRITIS
  3. HYDROXYCHLOROQUINE SULFATE [Suspect]
     Indication: RHEUMATOID ARTHRITIS
  4. PREDNISOLONE [Concomitant]
  5. MELOXICAM [Concomitant]
     Dosage: DOSE: UNK
  6. ESOMEPRAZOLE [Concomitant]
     Dosage: DOSE: UNK
  7. ATENOLOL [Concomitant]
     Dosage: DOSE: UNK
  8. FUROSEMIDE [Concomitant]
     Dosage: DOSE: UNK
  9. OXYCODONE HCL [Concomitant]
     Dosage: DOSE: UNK
  10. DOMPERIDONE [Concomitant]
     Dosage: DOSE: UNK
  11. DOTHIEPIN HYDROCHLORIDE [Concomitant]
     Dosage: DOSE: UNK

REACTIONS (9)
  - BONE MARROW DEPRESSION [None]
  - DEHYDRATION [None]
  - OEDEMA PERIPHERAL [None]
  - PNEUMONIA [None]
  - RENAL FAILURE ACUTE [None]
  - RESPIRATORY FAILURE [None]
  - SEPTIC SHOCK [None]
  - THERAPEUTIC AGENT TOXICITY [None]
  - THERAPY NON-RESPONDER [None]
